FAERS Safety Report 5387778-8 (Version None)
Quarter: 2007Q3

REPORT INFORMATION
  Report Type: 
  Country: None (occurrence: None)
  Receive Date: 20070712
  Receipt Date: 20070712
  Transmission Date: 20080115
  Serious: Yes (Hospitalization, Disabling)
  Sender: FDA-Public Use
  Company Number: None

PATIENT
  Age: 8 Year
  Sex: Female
  Weight: 26.7622 kg

DRUGS (1)
  1. ZOFRAN [Suspect]

REACTIONS (4)
  - CONVULSION [None]
  - ILL-DEFINED DISORDER [None]
  - OVERDOSE [None]
  - POST PROCEDURAL COMPLICATION [None]
